FAERS Safety Report 9393157 (Version 1)
Quarter: 2013Q3

REPORT INFORMATION
  Report Type: Spontaneous
  Country: US (occurrence: US)
  Receive Date: 20130710
  Receipt Date: 20130710
  Transmission Date: 20140515
  Serious: Yes (Hospitalization)
  Sender: FDA-Public Use
  Company Number: US-SANOFI-AVENTIS-2013SA053805

PATIENT
  Age: 24 Year
  Sex: Female

DRUGS (1)
  1. AUBAGIO [Suspect]
     Indication: MULTIPLE SCLEROSIS
     Route: 048
     Dates: start: 20130402

REACTIONS (4)
  - Gastroenteritis viral [Unknown]
  - Urinary tract infection [Unknown]
  - Weight increased [Unknown]
  - Alopecia [Unknown]
